FAERS Safety Report 5590876-7 (Version None)
Quarter: 2008Q1

REPORT INFORMATION
  Report Type: 
  Country: None (occurrence: None)
  Receive Date: 20080115
  Receipt Date: 20080107
  Transmission Date: 20080703
  Serious: Yes (Other)
  Sender: FDA-Public Use
  Company Number: FR-RB-007178-07

PATIENT
  Age: 29 Year
  Sex: Female
  Weight: 72 kg

DRUGS (3)
  1. SUBUTEX [Suspect]
     Indication: DRUG DEPENDENCE
     Route: 042
     Dates: start: 19990101
  2. SUBUTEX [Suspect]
     Route: 060
     Dates: start: 19990101
  3. TRANXENE [Concomitant]
     Dosage: FREQUENCY UNKNOWN.
     Route: 065
     Dates: start: 19990101

REACTIONS (5)
  - INSOMNIA [None]
  - INTENTIONAL DRUG MISUSE [None]
  - LYMPHOEDEMA [None]
  - NECROSIS [None]
  - OVERDOSE [None]
